FAERS Safety Report 7553997-5 (Version None)
Quarter: 2011Q2

REPORT INFORMATION
  Report Type: 
  Country: None (occurrence: None)
  Receive Date: 20110617
  Receipt Date: 20110615
  Transmission Date: 20111010
  Serious: Yes (Other)
  Sender: FDA-Public Use
  Company Number: US-PFIZER INC-2011131756

PATIENT
  Sex: Female
  Weight: 64 kg

DRUGS (3)
  1. BUDESONIDE [Suspect]
     Indication: ASTHMA
     Dosage: UNK, 2X/DAY
     Route: 048
     Dates: start: 19990101
  2. CHANTIX [Suspect]
     Indication: SMOKING CESSATION THERAPY
     Dosage: 0.5 MG, 1X/DAY
     Route: 048
     Dates: start: 20110602, end: 20110604
  3. COMBIVENT [Concomitant]
     Indication: ASTHMA
     Dosage: UNK

REACTIONS (4)
  - MUSCLE SPASTICITY [None]
  - HOSTILITY [None]
  - AGGRESSION [None]
  - RESTLESS LEGS SYNDROME [None]
